FAERS Safety Report 22986481 (Version 8)
Quarter: 2024Q2

REPORT INFORMATION
  Report Type: Report from Study
  Country: US (occurrence: US)
  Receive Date: 20230926
  Receipt Date: 20240624
  Transmission Date: 20240716
  Serious: Yes (Hospitalization, Other)
  Sender: FDA-Public Use
  Company Number: US-BIOVITRUM-2023-US-015058

PATIENT
  Age: 36 Year
  Sex: Female

DRUGS (1)
  1. KINERET [Suspect]
     Active Substance: ANAKINRA
     Indication: Still^s disease
     Dosage: 100 MG DAILY
     Route: 058
     Dates: start: 20230901

REACTIONS (13)
  - Pneumonia [Unknown]
  - COVID-19 [Unknown]
  - Heart rate decreased [Unknown]
  - Oxygen saturation decreased [Unknown]
  - Increased tendency to bruise [Unknown]
  - Injection site pain [Unknown]
  - Sepsis [Unknown]
  - Pulmonary hypertension [Unknown]
  - Injection site irritation [Unknown]
  - Off label use [Recovered/Resolved]
  - Product dose omission issue [Unknown]
  - Drug hypersensitivity [Unknown]
  - Condition aggravated [Unknown]

NARRATIVE: CASE EVENT DATE: 20230901
